FAERS Safety Report 8978911 (Version 1)
Quarter: 2012Q4

REPORT INFORMATION
  Report Type: Spontaneous
  Country: US (occurrence: None)
  Receive Date: 20121218
  Receipt Date: 20121218
  Transmission Date: 20130627
  Serious: Yes (Disabling)
  Sender: FDA-Public Use
  Company Number: None

PATIENT
  Age: 4 Year
  Sex: Male
  Weight: 29.4 kg

DRUGS (1)
  1. PROPOFOL INJECTION [Suspect]
     Indication: ANAESTHESIA
     Route: 042

REACTIONS (4)
  - Splenic rupture [None]
  - Oedema [None]
  - Poor peripheral circulation [None]
  - Peripheral sensory neuropathy [None]
